FAERS Safety Report 6585239-1 (Version None)
Quarter: 2010Q1

REPORT INFORMATION
  Report Type: 
  Country: None (occurrence: None)
  Receive Date: 20100217
  Receipt Date: 20100212
  Transmission Date: 20100710
  Serious: Yes (Hospitalization)
  Sender: FDA-Public Use
  Company Number: IT-ABBOTT-10P-083-0625469-00

PATIENT
  Age: 76 Year
  Sex: Male

DRUGS (13)
  1. DEPAKIN [Suspect]
     Indication: MOOD ALTERED
     Route: 048
     Dates: start: 20090101, end: 20100202
  2. ASPIRIN [Suspect]
     Indication: PROPHYLAXIS
     Route: 048
     Dates: start: 20090101, end: 20100130
  3. ALLOPURINOL [Concomitant]
     Indication: DRUG USE FOR UNKNOWN INDICATION
  4. LORTAAN [Concomitant]
     Indication: DRUG USE FOR UNKNOWN INDICATION
     Route: 048
  5. LASIX [Concomitant]
     Indication: DRUG USE FOR UNKNOWN INDICATION
     Route: 048
  6. EUTIROX [Concomitant]
     Indication: DRUG USE FOR UNKNOWN INDICATION
     Route: 048
  7. ENTACT [Concomitant]
     Indication: DRUG USE FOR UNKNOWN INDICATION
  8. SEROQUEL [Concomitant]
     Indication: DRUG USE FOR UNKNOWN INDICATION
     Route: 048
  9. NITROCOR [Concomitant]
     Indication: DRUG USE FOR UNKNOWN INDICATION
  10. TRIATEC [Concomitant]
     Indication: DRUG USE FOR UNKNOWN INDICATION
  11. TORVAST [Concomitant]
     Indication: DRUG USE FOR UNKNOWN INDICATION
  12. TALOFEN [Concomitant]
     Indication: DRUG USE FOR UNKNOWN INDICATION
  13. MOVICOL [Concomitant]
     Indication: DRUG USE FOR UNKNOWN INDICATION

REACTIONS (3)
  - HAEMOPTYSIS [None]
  - PULMONARY HAEMORRHAGE [None]
  - RESPIRATORY FAILURE [None]
